FAERS Safety Report 5526408-9 (Version None)
Quarter: 2007Q4

REPORT INFORMATION
  Report Type: 
  Country: None (occurrence: None)
  Receive Date: 20071123
  Receipt Date: 20070802
  Transmission Date: 20080405
  Serious: Yes (Other)
  Sender: FDA-Public Use
  Company Number: US-JNJFOC-20070801298

PATIENT
  Age: 43 Year
  Sex: Female
  Weight: 56.6996 kg

DRUGS (5)
  1. LEVAQUIN [Suspect]
     Indication: PNEUMONIA MYCOPLASMAL
     Dosage: 750 MG, IN 1 DAY, INTRAVENOUS
     Route: 042
     Dates: start: 20070601, end: 20070601
  2. LEVAQUIN [Suspect]
     Indication: PNEUMONIA MYCOPLASMAL
     Dosage: 500 MG, 1 IN 1 DAY, ORAL
     Route: 048
     Dates: start: 20070601, end: 20070601
  3. NAPROXIN (NAPROXEN) UNSPECIFIED [Concomitant]
  4. MOTRIN [Concomitant]
  5. VALIUM (DIAZEPAM) UNSPECIFIED [Concomitant]

REACTIONS (2)
  - MUSCLE RUPTURE [None]
  - PAIN IN EXTREMITY [None]
